FAERS Safety Report 7128102-X (Version None)
Quarter: 2010Q4

REPORT INFORMATION
  Report Type: 
  Country: None (occurrence: None)
  Receive Date: 20101130
  Receipt Date: 20101119
  Transmission Date: 20110411
  Serious: Yes (Hospitalization, Other)
  Sender: FDA-Public Use
  Company Number: IT-BRISTOL-MYERS SQUIBB COMPANY-15289903

PATIENT
  Age: 74 Year
  Sex: Male

DRUGS (5)
  1. ERBITUX [Suspect]
     Indication: COLON CANCER
     Dosage: RECENT INF:05AUG2010
     Route: 042
     Dates: start: 20100210, end: 20100805
  2. IRINOTECAN [Concomitant]
     Indication: COLON CANCER
     Dosage: IRINOTECAN HOSPIRA
     Dates: start: 20100210, end: 20100804
  3. FLUOROURACIL [Concomitant]
     Indication: COLON CANCER
     Dates: start: 20100210, end: 20100728
  4. ZOFRAN [Concomitant]
     Dates: start: 20100210, end: 20100804
  5. DECADRON [Concomitant]
     Dates: start: 20100210, end: 20100804

REACTIONS (7)
  - CONJUNCTIVITIS [None]
  - MUCOSAL INFLAMMATION [None]
  - NEPHROTIC SYNDROME [None]
  - PURPURA [None]
  - RASH [None]
  - RENAL FAILURE ACUTE [None]
  - ULCERATIVE KERATITIS [None]
